FAERS Safety Report 5749697-4 (Version None)
Quarter: 2008Q2

REPORT INFORMATION
  Report Type: 
  Country: None (occurrence: None)
  Receive Date: 20080527
  Receipt Date: 20080521
  Transmission Date: 20081010
  Serious: Yes (Other)
  Sender: FDA-Public Use
  Company Number: US-ASTRAZENECA-2008AC01320

PATIENT
  Age: 85 Year
  Sex: Male

DRUGS (10)
  1. LISINOPRIL [Suspect]
  2. LISINOPRIL [Suspect]
  3. LEVOTHYROXINE SODIUM [Concomitant]
  4. ASPIRIN [Concomitant]
  5. ALLOPURINOL [Concomitant]
  6. ALLOPURINOL [Concomitant]
  7. ATENOLOL [Concomitant]
  8. DOXEPIN HCL [Concomitant]
  9. FOLIC ACID [Concomitant]
  10. CYANOCOBALAMIN [Concomitant]

REACTIONS (1)
  - DERMATITIS EXFOLIATIVE [None]
